FAERS Safety Report 5937239-X (Version None)
Quarter: 2008Q4

REPORT INFORMATION
  Report Type: 
  Country: None (occurrence: None)
  Receive Date: 20081031
  Receipt Date: 20080610
  Transmission Date: 20090506
  Serious: No
  Sender: FDA-Public Use
  Company Number: US-BAYER-200812706BCC

PATIENT
  Age: 73 Year
  Sex: Female
  Weight: 45 kg

DRUGS (1)
  1. ALEVE [Suspect]
     Indication: ARTHRITIS
     Route: 048
     Dates: start: 20080607, end: 20080610

REACTIONS (1)
  - ABDOMINAL PAIN UPPER [None]
